FAERS Safety Report 9521822 (Version 1)
Quarter: 2013Q3

REPORT INFORMATION
  Report Type: Spontaneous
  Country: US (occurrence: None)
  Receive Date: 20130911
  Receipt Date: 20130911
  Transmission Date: 20140515
  Serious: Yes (Other)
  Sender: FDA-Public Use
  Company Number: AEUSA201300186

PATIENT
  Age: 4 Year
  Sex: Male
  Weight: 18 kg

DRUGS (4)
  1. GAMUNEX-C [Suspect]
     Indication: IMMUNE THROMBOCYTOPENIC PURPURA
     Dates: start: 2011, end: 2013
  2. TYLENOL /0002001/ [Concomitant]
  3. BENADRYL /00000402/ [Concomitant]
  4. FAMOTIDINE [Concomitant]

REACTIONS (1)
  - Anaphylactic reaction [None]
